FAERS Safety Report 25937929 (Version 2)
Quarter: 2025Q4

REPORT INFORMATION
  Report Type: Spontaneous
  Country: CN (occurrence: CN)
  Receive Date: 20251018
  Receipt Date: 20251030
  Transmission Date: 20260119
  Serious: Yes (Disabling, Other)
  Sender: ACCORD
  Company Number: CN-Accord-508491

PATIENT
  Age: 47 Year
  Sex: Female
  Weight: 70 kg

DRUGS (14)
  1. OXALIPLATIN [Suspect]
     Active Substance: OXALIPLATIN
     Indication: Gastric cancer
     Route: 042
     Dates: start: 20240407
  2. TS-1 [Concomitant]
     Active Substance: GIMERACIL\OTERACIL POTASSIUM\TEGAFUR
     Indication: Gastric cancer
     Route: 048
     Dates: start: 20240407
  3. ASPIRIN [Concomitant]
     Active Substance: ASPIRIN
     Dosage: ENTERIC-COATED TABLETS
  4. ATORVASTATIN CALCIUM [Concomitant]
     Active Substance: ATORVASTATIN CALCIUM
  5. NIFEDIPINE [Concomitant]
     Active Substance: NIFEDIPINE
     Dosage: SUSTAINED-RELEASE TABLETS
  6. OXALIPLATIN [Suspect]
     Active Substance: OXALIPLATIN
     Indication: Gastric cancer
     Dosage: 2ND CYCLE
     Route: 042
     Dates: start: 20240502, end: 2024
  7. OXALIPLATIN [Suspect]
     Active Substance: OXALIPLATIN
     Indication: Gastric cancer
     Dosage: 3RD CYCLE
     Route: 042
     Dates: start: 20240525, end: 2024
  8. OXALIPLATIN [Suspect]
     Active Substance: OXALIPLATIN
     Indication: Gastric cancer
     Dosage: 4TH CYCLE
     Route: 042
     Dates: start: 20240621, end: 2024
  9. OXALIPLATIN [Suspect]
     Active Substance: OXALIPLATIN
     Indication: Gastric cancer
     Dosage: 5TH CYCLE
     Route: 042
     Dates: start: 20240716, end: 2024
  10. TS-1 [Concomitant]
     Active Substance: GIMERACIL\OTERACIL POTASSIUM\TEGAFUR
     Indication: Gastric cancer
     Dosage: 2ND CYCLE
     Route: 048
     Dates: start: 20240502, end: 2024
  11. TS-1 [Concomitant]
     Active Substance: GIMERACIL\OTERACIL POTASSIUM\TEGAFUR
     Indication: Gastric cancer
     Dosage: 3RD CYCLE
     Route: 048
     Dates: start: 20240525, end: 2024
  12. TS-1 [Concomitant]
     Active Substance: GIMERACIL\OTERACIL POTASSIUM\TEGAFUR
     Indication: Gastric cancer
     Dosage: 4TH CYCLE
     Route: 048
     Dates: start: 20240626, end: 2024
  13. TS-1 [Concomitant]
     Active Substance: GIMERACIL\OTERACIL POTASSIUM\TEGAFUR
     Indication: Gastric cancer
     Dosage: 5TH CYCLE
     Route: 048
     Dates: start: 20240716, end: 2024
  14. TS-1 [Concomitant]
     Active Substance: GIMERACIL\OTERACIL POTASSIUM\TEGAFUR
     Indication: Gastric cancer
     Dosage: 6TH CYCLE
     Route: 048
     Dates: start: 20240908, end: 2024

REACTIONS (6)
  - Ocular toxicity [Unknown]
  - Iris cyst [Unknown]
  - Anterior chamber inflammation [Unknown]
  - Retinal detachment [Not Recovered/Not Resolved]
  - Blindness [Recovering/Resolving]
  - Cataract [Unknown]

NARRATIVE: CASE EVENT DATE: 20240518
